FAERS Safety Report 11662998 (Version 2)
Quarter: 2015Q4

REPORT INFORMATION
  Report Type: Spontaneous
  Country: US (occurrence: US)
  Receive Date: 20151027
  Receipt Date: 20151027
  Transmission Date: 20160304
  Serious: No
  Sender: FDA-Public Use
  Company Number: US-MEDA-2010040064

PATIENT
  Age: 49 Year
  Sex: Female

DRUGS (6)
  1. ONSOLIS [Suspect]
     Active Substance: FENTANYL CITRATE
     Indication: ARTHRALGIA
     Route: 002
     Dates: start: 20100423
  2. NEURONTIN [Concomitant]
     Active Substance: GABAPENTIN
     Indication: PAIN
     Route: 048
  3. ACTIQ [Concomitant]
     Active Substance: FENTANYL CITRATE
     Indication: BREAKTHROUGH PAIN
  4. ONSOLIS [Suspect]
     Active Substance: FENTANYL CITRATE
     Indication: ARTHRALGIA
     Dosage: MAX OF 4 BUCCAL FILMS/DAY
     Route: 002
     Dates: start: 20100409, end: 20100422
  5. OXYCONTIN [Concomitant]
     Active Substance: OXYCODONE HYDROCHLORIDE
     Indication: PAIN
     Route: 048
     Dates: start: 2006
  6. PROVIGIL [Concomitant]
     Active Substance: MODAFINIL
     Indication: PAIN
     Route: 048

REACTIONS (2)
  - Drug ineffective [Not Recovered/Not Resolved]
  - Product adhesion issue [Not Recovered/Not Resolved]

NARRATIVE: CASE EVENT DATE: 201004
